FAERS Safety Report 14171476 (Version 2)
Quarter: 2018Q2

REPORT INFORMATION
  Report Type: Spontaneous
  Country: US (occurrence: US)
  Receive Date: 20171108
  Receipt Date: 20180515
  Transmission Date: 20180711
  Serious: No
  Sender: FDA-Public Use
  Company Number: US-SA-2017SA111320

PATIENT
  Age: 69 Year
  Sex: Male

DRUGS (6)
  1. SOLOSTAR [Suspect]
     Active Substance: DEVICE
     Indication: TYPE 2 DIABETES MELLITUS
     Dates: start: 2015
  2. SOLOSTAR [Suspect]
     Active Substance: DEVICE
     Indication: TYPE 2 DIABETES MELLITUS
     Dates: end: 201706
  3. SOLOSTAR [Concomitant]
     Active Substance: DEVICE
  4. TOUJEO [Suspect]
     Active Substance: INSULIN GLARGINE
     Indication: TYPE 2 DIABETES MELLITUS
     Dosage: DOSE:12 UNIT(S)
     Route: 051
     Dates: end: 201706
  5. LANTUS SOLOSTAR [Concomitant]
     Active Substance: INSULIN GLARGINE
     Dosage: 60 SOME
     Route: 065
  6. TOUJEO [Suspect]
     Active Substance: INSULIN GLARGINE
     Indication: TYPE 2 DIABETES MELLITUS
     Dosage: DOSE:30 UNIT(S)
     Route: 051
     Dates: start: 2015

REACTIONS (13)
  - Fall [Recovering/Resolving]
  - Vision blurred [Unknown]
  - Asthenia [Unknown]
  - Muscular weakness [Recovering/Resolving]
  - Joint injury [Unknown]
  - Impaired quality of life [Unknown]
  - Blood glucose decreased [Unknown]
  - Toxicity to various agents [Unknown]
  - Gait disturbance [Unknown]
  - Diplopia [Recovering/Resolving]
  - Extra dose administered [Unknown]
  - Impaired driving ability [Unknown]
  - Visual impairment [Unknown]
